FAERS Safety Report 5141584-8 (Version None)
Quarter: 2006Q4

REPORT INFORMATION
  Report Type: 
  Country: None (occurrence: None)
  Receive Date: 20061030
  Receipt Date: 20061030
  Transmission Date: 20070319
  Serious: Yes (Other)
  Sender: FDA-Public Use
  Company Number: None

PATIENT
  Sex: Female
  Weight: 43.8 kg

DRUGS (4)
  1. ANGIOMAX [Suspect]
     Indication: ANTICOAGULANT THERAPY
     Dosage: 6.75CC BOLUS / 15 75CC IV INFUSI
     Route: 040
     Dates: start: 20061012, end: 20061012
  2. ANGIOMAX [Suspect]
     Indication: PERCUTANEOUS CORONARY INTERVENTION
     Dosage: 6.75CC BOLUS / 15 75CC IV INFUSI
     Route: 040
     Dates: start: 20061012, end: 20061012
  3. PLAVIX [Suspect]
     Indication: ANTICOAGULANT THERAPY
     Dosage: 600, 75  LOADING, MAINT PO
     Route: 048
     Dates: start: 20060612, end: 20061012
  4. PLAVIX [Suspect]
     Indication: PERCUTANEOUS CORONARY INTERVENTION
     Dosage: 600, 75  LOADING, MAINT PO
     Route: 048
     Dates: start: 20060612, end: 20061012

REACTIONS (3)
  - LABORATORY TEST ABNORMAL [None]
  - MYOCARDIAL INFARCTION [None]
  - POST PROCEDURAL COMPLICATION [None]
